FAERS Safety Report 14728536 (Version 2)
Quarter: 2018Q2

REPORT INFORMATION
  Report Type: Spontaneous
  Country: CH (occurrence: CH)
  Receive Date: 20180406
  Receipt Date: 20180413
  Transmission Date: 20180711
  Serious: Yes (Hospitalization, Congenital Anomaly)
  Sender: FDA-Public Use
  Company Number: CH-BAYER-2018-060651

PATIENT
  Age: 0 Year
  Sex: Female
  Weight: 2.47 kg

DRUGS (1)
  1. ASPIRIN CARDIO 100 MG [Suspect]
     Active Substance: ASPIRIN
     Indication: FOETAL GROWTH RESTRICTION
     Dosage: 100 MG, QD
     Route: 064
     Dates: start: 2017, end: 20180110

REACTIONS (3)
  - Exposure during pregnancy [Recovered/Resolved]
  - Cerebral haemorrhage foetal [Recovered/Resolved with Sequelae]
  - Congenital hydrocephalus [Unknown]

NARRATIVE: CASE EVENT DATE: 201706
